FAERS Safety Report 6122022-5 (Version None)
Quarter: 2009Q1

REPORT INFORMATION
  Report Type: 
  Country: None (occurrence: None)
  Receive Date: 20090316
  Receipt Date: 20090309
  Transmission Date: 20090719
  Serious: Yes (Hospitalization, Other)
  Sender: FDA-Public Use
  Company Number: 187138USA

PATIENT
  Age: 67 Year
  Sex: Female

DRUGS (1)
  1. ISONIAZID [Suspect]
     Indication: ANTIBIOTIC PROPHYLAXIS
     Dosage: ONE TABLET DAILY (1 IN 1 D), ORAL
     Route: 048
     Dates: start: 20080701, end: 20080801

REACTIONS (4)
  - HEPATIC FAILURE [None]
  - NECK PAIN [None]
  - NERVOUS SYSTEM DISORDER [None]
  - PYREXIA [None]
